FAERS Safety Report 13403711 (Version 2)
Quarter: 2017Q2

REPORT INFORMATION
  Report Type: Spontaneous
  Country: DE (occurrence: DE)
  Receive Date: 20170405
  Receipt Date: 20170606
  Transmission Date: 20170830
  Serious: Yes (Hospitalization, Other)
  Sender: FDA-Public Use
  Company Number: PHHY2017DE047519

PATIENT
  Age: 45 Year
  Sex: Female

DRUGS (6)
  1. ARCOXIA [Concomitant]
     Active Substance: ETORICOXIB
     Indication: PAIN
     Dosage: UNK
     Route: 065
     Dates: start: 20160926
  2. PANTOPRAZOLE [Concomitant]
     Active Substance: PANTOPRAZOLE
     Indication: PROPHYLAXIS
     Dosage: UNK
     Route: 065
     Dates: start: 20170120
  3. MOVICOL [Concomitant]
     Active Substance: POLYETHYLENE GLYCOL 3350\POTASSIUM CHLORIDE\SODIUM BICARBONATE\SODIUM CHLORIDE
     Indication: CONSTIPATION
     Dosage: UNK
     Route: 065
  4. GILENYA [Suspect]
     Active Substance: FINGOLIMOD HYDROCHLORIDE
     Indication: RELAPSING-REMITTING MULTIPLE SCLEROSIS
     Dosage: 0.5 MG, QD
     Route: 048
     Dates: start: 20170207, end: 20170208
  5. VERSATIS [Concomitant]
     Active Substance: LIDOCAINE
     Indication: PAIN
     Dosage: UNK
     Route: 065
     Dates: start: 20160926
  6. PREGABALIN. [Concomitant]
     Active Substance: PREGABALIN
     Indication: PAIN
     Dosage: 750 MG, QD
     Route: 048
     Dates: start: 20160926

REACTIONS (18)
  - Asthma [Unknown]
  - Trismus [Unknown]
  - Mouth swelling [Unknown]
  - Swollen tongue [Unknown]
  - Respiratory arrest [Unknown]
  - Laryngeal oedema [Unknown]
  - Tongue oedema [Unknown]
  - Laryngospasm [Unknown]
  - Bronchospasm [Unknown]
  - Bronchitis [Unknown]
  - Oedema mucosal [Recovered/Resolved]
  - Bronchial oedema [Unknown]
  - Tongue spasm [Unknown]
  - Dysphagia [Recovered/Resolved]
  - Oedema mouth [Unknown]
  - Hypersensitivity [Recovered/Resolved]
  - Dyspnoea [Recovered/Resolved]
  - Wheezing [Unknown]

NARRATIVE: CASE EVENT DATE: 20170207
